FAERS Safety Report 20528398 (Version 1)
Quarter: 2022Q1

REPORT INFORMATION
  Report Type: Spontaneous
  Country: FR (occurrence: FR)
  Receive Date: 20220228
  Receipt Date: 20220228
  Transmission Date: 20220423
  Serious: Yes (Hospitalization, Other)
  Sender: FDA-Public Use
  Company Number: None

PATIENT
  Age: 9 Year
  Sex: Female

DRUGS (4)
  1. VANCOMYCIN [Suspect]
     Active Substance: VANCOMYCIN
     Indication: Device related infection
     Dosage: 60 MILLIGRAM/KILOGRAM, 60 MG/KG CONTINUOUS
     Route: 041
     Dates: start: 20211221, end: 20211224
  2. VANCOMYCIN [Suspect]
     Active Substance: VANCOMYCIN
     Dosage: 15 MG/KG LOADING DOSE THEN 60 MG/KG
     Route: 041
     Dates: start: 20211221, end: 20211224
  3. PIPERACILLIN SODIUM\TAZOBACTAM SODIUM [Suspect]
     Active Substance: PIPERACILLIN SODIUM\TAZOBACTAM SODIUM
     Indication: Device related infection
     Dosage: 70 MILLIGRAM/KILOGRAM, Q6H, 70 MG/KG EVERY 6 HOURS
     Route: 041
     Dates: start: 20211221, end: 20211224
  4. PIPERACILLIN SODIUM\TAZOBACTAM SODIUM [Suspect]
     Active Substance: PIPERACILLIN SODIUM\TAZOBACTAM SODIUM
     Dosage: 75 MILLIGRAM/KILOGRAM, TID
     Route: 041
     Dates: start: 20211221, end: 20211224

REACTIONS (3)
  - Acute kidney injury [Recovered/Resolved]
  - Product preparation error [Recovered/Resolved]
  - Incorrect dosage administered [Recovered/Resolved]

NARRATIVE: CASE EVENT DATE: 20211224
